FAERS Safety Report 4846932-1 (Version None)
Quarter: 2005Q4

REPORT INFORMATION
  Report Type: 
  Country: None (occurrence: None)
  Receive Date: 20051202
  Receipt Date: 20051125
  Transmission Date: 20060501
  Serious: Yes (Hospitalization)
  Sender: FDA-Public Use
  Company Number: HQWYE962611OCT05

PATIENT
  Age: 34 Year
  Sex: Female

DRUGS (1)
  1. ANGE-28 (LEVONORESTREL / ETYINYL ESTRADIOL / INERT, TABLET) [Suspect]
     Indication: CONTRACEPTION
     Dosage: 1 TABLET 1X PER 1 DAY, ORAL
     Route: 048
     Dates: start: 20050901, end: 20050916

REACTIONS (5)
  - ANAEMIA [None]
  - LOSS OF CONSCIOUSNESS [None]
  - MENORRHAGIA [None]
  - PLATELET COUNT DECREASED [None]
  - WHITE BLOOD CELL COUNT DECREASED [None]
